FAERS Safety Report 8849442 (Version 2)
Quarter: 2013Q1

REPORT INFORMATION
  Report Type: Spontaneous
  Country: US (occurrence: None)
  Receive Date: 20121017
  Receipt Date: 20121113
  Transmission Date: 20140127
  Serious: Yes (Other)
  Sender: FDA-Public Use
  Company Number: 2012P1060508

PATIENT
  Age: 68 Year
  Sex: Female
  Weight: 63.5 kg

DRUGS (4)
  1. FENTANYL PATCH [Suspect]
     Indication: PAIN
     Dosage: 1 PATCH;Q72H;TDER
     Route: 062
     Dates: start: 2011
  2. NEURONTIN [Concomitant]
  3. CYMBALTA [Concomitant]
  4. TEGRETOL [Concomitant]

REACTIONS (4)
  - Restlessness [None]
  - Psychomotor hyperactivity [None]
  - Feeling abnormal [None]
  - Treatment noncompliance [None]
